FAERS Safety Report 19152400 (Version 1)
Quarter: 2021Q2

REPORT INFORMATION
  Report Type: Spontaneous
  Country: US (occurrence: US)
  Receive Date: 20210416
  Receipt Date: 20210416
  Transmission Date: 20210717
  Serious: Yes (Hospitalization)
  Sender: FDA-Public Use
  Company Number: None

PATIENT
  Age: 19 Year
  Sex: Female

DRUGS (3)
  1. DIPHENHYDRAMINE. [Suspect]
     Active Substance: DIPHENHYDRAMINE
  2. IBUPROFEN 600 MG [Concomitant]
     Active Substance: IBUPROFEN
  3. AMOXIL [Suspect]
     Active Substance: AMOXICILLIN

REACTIONS (2)
  - Intentional product use issue [None]
  - Intentional self-injury [None]

NARRATIVE: CASE EVENT DATE: 20210124
